FAERS Safety Report 6250011-9 (Version None)
Quarter: 2009Q2

REPORT INFORMATION
  Report Type: 
  Country: None (occurrence: None)
  Receive Date: 20090629
  Receipt Date: 20090618
  Transmission Date: 20091009
  Serious: Yes (Other)
  Sender: FDA-Public Use
  Company Number: PHHY2009MX23947

PATIENT
  Sex: Female

DRUGS (2)
  1. TRILEPTAL [Suspect]
     Indication: ANXIETY
     Dosage: 2 TABLET (300 MG) PER DAY
     Route: 048
     Dates: start: 20000101
  2. EPAMIN [Concomitant]
     Indication: CONVULSION
     Dosage: 3 TABLETS PER DAY
     Route: 048
     Dates: start: 19890616

REACTIONS (2)
  - DENTAL OPERATION [None]
  - GINGIVAL HYPERPLASIA [None]
